FAERS Safety Report 25919252 (Version 3)
Quarter: 2025Q4

REPORT INFORMATION
  Report Type: Spontaneous
  Country: KR (occurrence: KR)
  Receive Date: 20251014
  Receipt Date: 20251210
  Transmission Date: 20260117
  Serious: No
  Sender: PFIZER
  Company Number: KR-PFIZER INC-PV202500120903

PATIENT
  Age: 11 Year
  Sex: Male

DRUGS (1)
  1. GENOTROPIN [Suspect]
     Active Substance: SOMATROPIN
     Indication: Short stature
     Dosage: 6 IU, 6 TIMES WEEKLY
     Dates: start: 20241030

REACTIONS (3)
  - Device use error [Unknown]
  - Device breakage [Unknown]
  - Device material issue [Unknown]
